FAERS Safety Report 5862179-4 (Version None)
Quarter: 2008Q3

REPORT INFORMATION
  Report Type: 
  Country: None (occurrence: None)
  Receive Date: 20080828
  Receipt Date: 20080613
  Transmission Date: 20090109
  Serious: No
  Sender: FDA-Public Use
  Company Number: A0732907A

PATIENT
  Age: 35 Year
  Sex: Female

DRUGS (7)
  1. ZOVIRAX [Suspect]
     Indication: GENITAL HERPES
     Dosage: 400MG THREE TIMES PER DAY
     Route: 048
     Dates: start: 20080501
  2. EFFEXOR [Concomitant]
  3. BACLOFEN [Concomitant]
  4. PREVACID [Concomitant]
  5. TRAZODONE HCL [Concomitant]
  6. UNKNOWN MEDICATION [Concomitant]
  7. DESOGESTREL AND ETHINYL ESTRADIOL [Concomitant]

REACTIONS (2)
  - BURNING SENSATION [None]
  - PAIN [None]
